FAERS Safety Report 4748391-6 (Version None)
Quarter: 2005Q3

REPORT INFORMATION
  Report Type: 
  Country: None (occurrence: None)
  Receive Date: 20050815
  Receipt Date: 20050520
  Transmission Date: 20060218
  Serious: No
  Sender: FDA-Public Use
  Company Number: USA050598657

PATIENT
  Age: 67 Year
  Sex: Male

DRUGS (1)
  1. CIALIS [Suspect]
     Dosage: 20 MG

REACTIONS (5)
  - DRUG INEFFECTIVE [None]
  - FLUSHING [None]
  - HEADACHE [None]
  - NASAL CONGESTION [None]
  - THERAPEUTIC RESPONSE DECREASED [None]
